FAERS Safety Report 15151903 (Version 1)
Quarter: 2018Q3

REPORT INFORMATION
  Report Type: Spontaneous
  Country: ES (occurrence: ES)
  Receive Date: 20180717
  Receipt Date: 20180717
  Transmission Date: 20181010
  Serious: Yes (Hospitalization)
  Sender: FDA-Public Use
  Company Number: ES-TEVA-2018-ES-925927

PATIENT
  Age: 35 Year
  Sex: Male

DRUGS (6)
  1. TACROLIMUS. [Suspect]
     Active Substance: TACROLIMUS
     Indication: RENAL TRANSPLANT
     Dosage: 10 MILLIGRAM DAILY; 10 MG DIA
     Route: 048
     Dates: start: 20150630, end: 20170915
  2. PREDNISONA (886A) [Concomitant]
     Active Substance: PREDNISONE
     Dosage: 5 MG DIA
     Route: 048
     Dates: start: 20160617
  3. ADIRO 100 MG COMPRIMIDOS GASTRORRESISTENTES EFG , 30 COMPRIMIDOS [Concomitant]
     Active Substance: ASPIRIN
     Dosage: 0?1?0
     Route: 048
     Dates: start: 20160617
  4. CARDURAN NEO [Concomitant]
     Active Substance: DOXAZOSIN MESYLATE
     Dosage: 4 MG DIA
     Route: 048
     Dates: start: 20160923
  5. CARVEDILOL (2431A) [Concomitant]
     Active Substance: CARVEDILOL
     Dosage: 6,25 MG DIA
     Route: 048
     Dates: start: 20160617
  6. MYFORTIC [Concomitant]
     Active Substance: MYCOPHENOLATE SODIUM
     Dosage: 360 MG DE Y CE
     Route: 048
     Dates: start: 20160617

REACTIONS (1)
  - Thrombotic microangiopathy [Recovered/Resolved]

NARRATIVE: CASE EVENT DATE: 20170915
